FAERS Safety Report 6197963-3 (Version None)
Quarter: 2009Q2

REPORT INFORMATION
  Report Type: 
  Country: None (occurrence: None)
  Receive Date: 20090521
  Receipt Date: 20090518
  Transmission Date: 20091009
  Serious: Yes (Hospitalization)
  Sender: FDA-Public Use
  Company Number: B0574706A

PATIENT
  Sex: Male

DRUGS (2)
  1. LAMICTAL [Suspect]
     Indication: EPILEPSY
     Dosage: 25MG ALTERNATE DAYS
     Route: 048
     Dates: start: 20090401, end: 20090511
  2. DEPAKENE [Concomitant]
     Indication: EPILEPSY
     Route: 048

REACTIONS (11)
  - BLISTER [None]
  - BLOOD LACTATE DEHYDROGENASE INCREASED [None]
  - DIZZINESS [None]
  - DRUG RASH WITH EOSINOPHILIA AND SYSTEMIC SYMPTOMS [None]
  - HEADACHE [None]
  - LIVER DISORDER [None]
  - LYMPHADENOPATHY [None]
  - PROTEIN URINE [None]
  - PYREXIA [None]
  - RASH PAPULAR [None]
  - TRANSAMINASES INCREASED [None]
